FAERS Safety Report 6514993-X (Version None)
Quarter: 2009Q4

REPORT INFORMATION
  Report Type: 
  Country: None (occurrence: None)
  Receive Date: 20091223
  Receipt Date: 20091218
  Transmission Date: 20100525
  Serious: No
  Sender: FDA-Public Use
  Company Number: US-BAYER-200943262NA

PATIENT
  Sex: Female

DRUGS (2)
  1. CIPRO [Suspect]
     Indication: DRUG USE FOR UNKNOWN INDICATION
  2. AVELOX [Suspect]
     Indication: INFECTION

REACTIONS (5)
  - ASTHMA [None]
  - DRUG INEFFECTIVE [None]
  - INFECTION [None]
  - MUSCLE TIGHTNESS [None]
  - OEDEMA PERIPHERAL [None]
